FAERS Safety Report 9760450 (Version 2)
Quarter: 2014Q1

REPORT INFORMATION
  Report Type: Spontaneous
  Country: US (occurrence: None)
  Receive Date: 20131212
  Receipt Date: 20140212
  Transmission Date: 20141002
  Serious: Yes (Hospitalization)
  Sender: FDA-Public Use
  Company Number: AUR-APL-2013-10332

PATIENT
  Age: 50 Year
  Sex: Male
  Weight: 90.72 kg

DRUGS (4)
  1. MELOXICAM [Suspect]
     Indication: PRODUCT USED FOR UNKNOWN INDICATION
     Dosage: 7.5 MG, 1 D, ORAL
     Route: 048
     Dates: start: 20110318, end: 20131022
  2. ALLOPURINOL (ALLOPURINOL) [Concomitant]
  3. METFORMIN (METFORMIN) [Concomitant]
  4. METOPROLOL (METOPROLOL) [Concomitant]

REACTIONS (3)
  - Gastric perforation [None]
  - Haemorrhage [None]
  - Blood pressure decreased [None]
